FAERS Safety Report 9688505 (Version 2)
Quarter: 2013Q4

REPORT INFORMATION
  Report Type: Spontaneous
  Country: US (occurrence: None)
  Receive Date: 20131112
  Receipt Date: 20131127
  Transmission Date: 20140711
  Serious: Yes (Other)
  Sender: FDA-Public Use
  Company Number: 2013P1020643

PATIENT
  Age: 17 Year
  Sex: Female

DRUGS (1)
  1. MYORISAN 40 MG [Suspect]
     Indication: ACNE
     Route: 048
     Dates: start: 20130607

REACTIONS (2)
  - Depression [None]
  - Mood altered [None]
